FAERS Safety Report 9289310 (Version 1)
Quarter: 2013Q2

REPORT INFORMATION
  Report Type: Spontaneous
  Country: US (occurrence: US)
  Receive Date: 20130514
  Receipt Date: 20130514
  Transmission Date: 20140414
  Serious: No
  Sender: FDA-Public Use
  Company Number: US-OPTIMER PHARMACEUTICALS, INC.-20120040

PATIENT
  Age: 52 Year
  Sex: Female
  Weight: 59.86 kg

DRUGS (7)
  1. DIFICID [Suspect]
     Indication: CLOSTRIDIAL INFECTION
     Dosage: 200 MG, BID
     Route: 048
     Dates: start: 20120306, end: 20120316
  2. COREG [Concomitant]
     Indication: CARDIAC FAILURE CONGESTIVE
     Dosage: 12.5 MG BID
     Route: 048
  3. LISINOPRIL [Concomitant]
     Indication: CARDIAC FAILURE CONGESTIVE
     Dosage: 5 MG, QD
     Route: 048
  4. BUSPAR [Concomitant]
     Indication: ANXIETY
     Dosage: 15 MG, BID
     Route: 048
  5. XANAX [Concomitant]
     Indication: ANXIETY
     Dosage: 1 MG, PRN
     Route: 048
  6. SOTALOL [Concomitant]
     Indication: VENTRICULAR TACHYCARDIA
     Dosage: 120 MG, BID
     Route: 048
  7. SOTALOL [Concomitant]
     Dosage: 80 MG, QD
     Route: 048

REACTIONS (5)
  - Clostridium difficile infection [Unknown]
  - Disease recurrence [Unknown]
  - Abdominal pain upper [Unknown]
  - Gastrointestinal sounds abnormal [Unknown]
  - Diarrhoea [Unknown]
